FAERS Safety Report 18981288 (Version 1)
Quarter: 2021Q1

REPORT INFORMATION
  Report Type: Spontaneous
  Country: FR (occurrence: FR)
  Receive Date: 20210308
  Receipt Date: 20210308
  Transmission Date: 20210420
  Serious: Yes (Other)
  Sender: FDA-Public Use
  Company Number: FR-BAXTER-2021BAX003908

PATIENT
  Age: 1 Year
  Sex: Female
  Weight: 12.5 kg

DRUGS (3)
  1. GLUCOSE 5% VIAFLO, SOLUTION POUR PERFUSION [Suspect]
     Active Substance: DEXTROSE
     Indication: PRODUCT USED FOR UNKNOWN INDICATION
     Route: 041
     Dates: start: 20210213
  2. BICARBONATE DE SODIUM BAXTER A 1,4 POUR CENT, SOLUTION INJECTABLE POUR [Suspect]
     Active Substance: SODIUM BICARBONATE
     Indication: PRODUCT USED FOR UNKNOWN INDICATION
     Route: 041
     Dates: start: 20210213
  3. POTASSIUM CHLORIDE. [Suspect]
     Active Substance: POTASSIUM CHLORIDE
     Indication: PRODUCT USED FOR UNKNOWN INDICATION
     Route: 041
     Dates: start: 20210213

REACTIONS (2)
  - Oedema [Recovered/Resolved]
  - Catheter site extravasation [Recovered/Resolved]

NARRATIVE: CASE EVENT DATE: 20210213
